FAERS Safety Report 18127324 (Version 1)
Quarter: 2020Q3

REPORT INFORMATION
  Report Type: Spontaneous
  Country: US (occurrence: US)
  Receive Date: 20200810
  Receipt Date: 20200810
  Transmission Date: 20201103
  Serious: No
  Sender: FDA-Public Use
  Company Number: US-HTU-2020US020118

PATIENT
  Sex: Male

DRUGS (3)
  1. VALCHLOR [Suspect]
     Active Substance: MECHLORETHAMINE
     Indication: CUTANEOUS T-CELL LYMPHOMA
     Dosage: UNK, 3?5 TIMES A WEEK
     Route: 061
     Dates: start: 20191115
  2. ZETIA [Concomitant]
     Active Substance: EZETIMIBE
  3. CIALIS [Concomitant]
     Active Substance: TADALAFIL

REACTIONS (2)
  - Off label use [Unknown]
  - Application site pain [Unknown]
